FAERS Safety Report 4307630-6 (Version None)
Quarter: 2004Q1

REPORT INFORMATION
  Report Type: 
  Country: None (occurrence: None)
  Receive Date: 20040227
  Receipt Date: 20040227
  Transmission Date: 20041129
  Serious: Yes (Life-Threatening)
  Sender: FDA-Public Use
  Company Number: None

PATIENT
  Sex: Male
  Weight: 84.5958 kg

DRUGS (13)
  1. IRESSA [Suspect]
     Indication: COLON CANCER METASTATIC
     Dosage: 250 MG PO DAILY FOR 2 WKS
     Route: 048
     Dates: start: 20040204, end: 20040223
  2. IRINOTECAN [Suspect]
     Indication: COLON CANCER METASTATIC
     Dosage: 180 MG /M2 IV BOLUS D10 8 EACH AKE
     Dates: start: 20040203, end: 20040218
  3. FLUOROURACIL [Suspect]
     Indication: COLON CANCER METASTATIC
     Dosage: 400 MG/M2 IV PUSH D1 OF EACH CYCLE
     Route: 042
     Dates: start: 20040203, end: 20040218
  4. FLUOROURACIL INJ [Suspect]
     Indication: COLON CANCER METASTATIC
     Dosage: 1200 MG/M2 IV CON'T INF DAYS 1-3 EACH CYC
     Route: 042
     Dates: start: 20040208, end: 20040220
  5. CLEOCIN T GEL [Concomitant]
  6. COMPAZINE [Concomitant]
  7. DETROL [Concomitant]
  8. IRON [Concomitant]
  9. LEVAQUIN [Concomitant]
  10. MULTI-VITAMINS [Concomitant]
  11. NEUTRA-PHOS [Concomitant]
  12. ZOFRAN [Concomitant]
  13. LEUCOVORIN [Suspect]
     Indication: COLON CANCER METASTATIC
     Dosage: 200 MG/M2  D1 OF EACH CYCLE
     Dates: start: 20040203, end: 20040218

REACTIONS (3)
  - COUGH [None]
  - DIARRHOEA [None]
  - NEUTROPENIA [None]
